FAERS Safety Report 9003835 (Version 1)
Quarter: 2013Q1

REPORT INFORMATION
  Report Type: Spontaneous
  Country: US (occurrence: US)
  Receive Date: 20130108
  Receipt Date: 20130108
  Transmission Date: 20140127
  Serious: No
  Sender: FDA-Public Use
  Company Number: US-GLAXOSMITHKLINE-A0990582A

PATIENT
  Age: 67 Year
  Sex: Female

DRUGS (5)
  1. LOVAZA [Suspect]
     Indication: PRODUCT USED FOR UNKNOWN INDICATION
     Dosage: 2CAP PER DAY
     Route: 048
     Dates: start: 20120802, end: 20120816
  2. PROTONIX [Concomitant]
  3. CALTRATE [Concomitant]
  4. VITAMIN D [Concomitant]
  5. MULTIVITAMIN [Concomitant]

REACTIONS (2)
  - Myalgia [Recovered/Resolved]
  - Insomnia [Unknown]
